FAERS Safety Report 7355234-3 (Version None)
Quarter: 2011Q1

REPORT INFORMATION
  Report Type: 
  Country: None (occurrence: None)
  Receive Date: 20110316
  Receipt Date: 20110311
  Transmission Date: 20110831
  Serious: Yes (Hospitalization, Other)
  Sender: FDA-Public Use
  Company Number: SK-PFIZER INC-2011055405

PATIENT
  Age: 54 Year
  Sex: Female

DRUGS (1)
  1. SUNITINIB MALATE [Suspect]
     Indication: RENAL CANCER
     Dosage: 50 MG, UNK
     Dates: start: 20081201

REACTIONS (6)
  - RENAL CANCER [None]
  - HAEMATOTOXICITY [None]
  - CIRCULATORY COLLAPSE [None]
  - DISEASE PROGRESSION [None]
  - UTERINE LEIOMYOMA [None]
  - UTERINE NEOPLASM [None]
